FAERS Safety Report 8024222-6 (Version None)
Quarter: 2012Q1

REPORT INFORMATION
  Report Type: 
  Country: None (occurrence: None)
  Receive Date: 20120105
  Receipt Date: 20070516
  Transmission Date: 20120608
  Serious: Yes (Other)
  Sender: FDA-Public Use
  Company Number: PHHY2007CL011521

PATIENT
  Age: 79 Year
  Sex: Female

DRUGS (1)
  1. VALSARTAN [Suspect]

REACTIONS (1)
  - HIP FRACTURE [None]
